FAERS Safety Report 8624056 (Version 3)
Quarter: 2012Q4

REPORT INFORMATION
  Report Type: Spontaneous
  Country: JP (occurrence: None)
  Receive Date: 20120606
  Receipt Date: 20120821
  Transmission Date: 20130627
  Serious: Yes (Other)
  Sender: FDA-Public Use
  Company Number: TCI2012A02640

PATIENT
  Age: 82 Year
  Sex: Male

DRUGS (11)
  1. RAMELTEON [Suspect]
     Indication: PASSIVE SMOKING
     Dosage: 8 MG (8 MG,1 IN 1 D) GASTROSTOMY TUBE
     Dates: start: 20120430, end: 20120502
  2. PRECEDEX [Suspect]
     Indication: SEDATION
     Dosage: SEE IMAGE
     Route: 042
     Dates: start: 20120505, end: 20120506
  3. PRECEDEX [Suspect]
     Indication: SEDATION
     Dosage: SEE IMAGE
     Route: 042
     Dates: start: 20120502, end: 20120502
  4. PRECEDEX [Suspect]
     Indication: SEDATION
     Dosage: SEE IMAGE
     Route: 042
     Dates: start: 20120503, end: 20120504
  5. PRECEDEX [Suspect]
     Indication: SEDATION
     Dosage: SEE IMAGE
     Route: 042
     Dates: start: 20120430, end: 20120430
  6. PRECEDEX [Suspect]
     Indication: SEDATION
     Dosage: SEE IMAGE
     Route: 042
     Dates: start: 20120501, end: 20120501
  7. PROPOFOL [Concomitant]
  8. TEICOPLANIN [Concomitant]
  9. PAZUFLOXACIN [Concomitant]
  10. ERYTHROCIN (ERYTHROMYCIN LACTOBIONATE) [Concomitant]
  11. OLMESARTAN MEDOXOMIL [Concomitant]

REACTIONS (2)
  - RESPIRATORY ARREST [None]
  - ATELECTASIS [None]
